FAERS Safety Report 21052154 (Version 7)
Quarter: 2022Q4

REPORT INFORMATION
  Report Type: Report from Study
  Country: CN (occurrence: CN)
  Receive Date: 20220707
  Receipt Date: 20221007
  Transmission Date: 20230112
  Serious: Yes (Hospitalization)
  Sender: FDA-Public Use
  Company Number: CN-PFM-2022-05358

PATIENT
  Age: 29 Year
  Sex: Female
  Weight: 52.5 kg

DRUGS (11)
  1. ENCORAFENIB [Suspect]
     Active Substance: ENCORAFENIB
     Indication: Colon cancer
     Dosage: 300 MG, QD (1/DAY)
     Route: 048
     Dates: start: 20220402, end: 20220426
  2. ENCORAFENIB [Suspect]
     Active Substance: ENCORAFENIB
     Dosage: 300 MG, QD (1/DAY)
     Route: 048
     Dates: start: 20220520, end: 20220625
  3. ENCORAFENIB [Suspect]
     Active Substance: ENCORAFENIB
     Dosage: 225 MG, QD (1/DAY)
     Route: 048
     Dates: start: 20220704
  4. CETUXIMAB [Suspect]
     Active Substance: CETUXIMAB
     Indication: Colon cancer
     Dosage: 250 MG/M2, WEEKLY
     Route: 042
     Dates: start: 20220402, end: 20220429
  5. CETUXIMAB [Suspect]
     Active Substance: CETUXIMAB
     Dosage: 250 MG/M2, WEEKLY (DOSE DELAYED ON 24JUN2022)
     Route: 042
     Dates: start: 20220520
  6. CETUXIMAB [Suspect]
     Active Substance: CETUXIMAB
     Dosage: 250 MG/M2, WEEKLY (DOSE DELAYED ON 24JUN2022)
     Route: 042
     Dates: start: 20220704
  7. SOMATOSTATIN [Concomitant]
     Active Substance: SOMATOSTATIN
     Dosage: 6 MG
     Route: 042
     Dates: start: 20220630, end: 20220630
  8. SOMATOSTATIN [Concomitant]
     Active Substance: SOMATOSTATIN
     Dosage: 6 MG
     Route: 042
     Dates: start: 20220701, end: 20220701
  9. OMEPRAZOLE SODIUM [Concomitant]
     Active Substance: OMEPRAZOLE SODIUM
     Dosage: 80 MG
     Route: 042
     Dates: start: 20220630, end: 20220630
  10. OMEPRAZOLE SODIUM [Concomitant]
     Active Substance: OMEPRAZOLE SODIUM
     Dosage: 80 MG (PRESCRIBED 3 TIMES)
     Route: 042
     Dates: start: 20220701, end: 20220701
  11. OMEPRAZOLE SODIUM [Concomitant]
     Active Substance: OMEPRAZOLE SODIUM
     Dosage: 80 MG
     Route: 042
     Dates: start: 20220702, end: 20220702

REACTIONS (1)
  - Lipase increased [Recovered/Resolved]

NARRATIVE: CASE EVENT DATE: 20220625
